FAERS Safety Report 6383752-3 (Version None)
Quarter: 2009Q4

REPORT INFORMATION
  Report Type: 
  Country: None (occurrence: None)
  Receive Date: 20091001
  Receipt Date: 20090923
  Transmission Date: 20100525
  Serious: Yes (Other)
  Sender: FDA-Public Use
  Company Number: US-BAYER-200934029NA

PATIENT
  Sex: Female

DRUGS (3)
  1. YAZ [Suspect]
     Indication: ORAL CONTRACEPTION
     Dates: start: 20070901, end: 20080901
  2. YASMIN [Suspect]
     Indication: CONTRACEPTION
     Dates: start: 20070901, end: 20080901
  3. OCELLA [Suspect]
     Indication: CONTRACEPTION
     Dates: start: 20070901, end: 20080901

REACTIONS (2)
  - PAIN [None]
  - PULMONARY EMBOLISM [None]
